FAERS Safety Report 8136291-3 (Version None)
Quarter: 2012Q1

REPORT INFORMATION
  Report Type: 
  Country: None (occurrence: None)
  Receive Date: 20120214
  Receipt Date: 20120210
  Transmission Date: 20120608
  Serious: Yes (Other)
  Sender: FDA-Public Use
  Company Number: US-AMGEN-USASP2012009162

PATIENT
  Age: 82 Year
  Sex: Female

DRUGS (6)
  1. PREMARIN [Concomitant]
     Dosage: 0.3 MG, UNK
  2. PROLIA [Suspect]
     Indication: OSTEOPOROSIS POSTMENOPAUSAL
     Dates: start: 20120113
  3. LIVALO [Concomitant]
  4. NASONEX [Concomitant]
  5. LIBRIUM                            /00011501/ [Concomitant]
     Dosage: UNK
  6. PROBIOTICS NOS [Concomitant]
     Indication: IRRITABLE BOWEL SYNDROME

REACTIONS (13)
  - DISORIENTATION [None]
  - ABDOMINAL DISCOMFORT [None]
  - MALAISE [None]
  - DEPRESSION [None]
  - ARTHRALGIA [None]
  - ERYTHEMA [None]
  - BACK PAIN [None]
  - BONE PAIN [None]
  - DIZZINESS [None]
  - DIARRHOEA [None]
  - INFLUENZA LIKE ILLNESS [None]
  - FLATULENCE [None]
  - MICTURITION URGENCY [None]
